FAERS Safety Report 19267586 (Version 2)
Quarter: 2021Q4

REPORT INFORMATION
  Report Type: Spontaneous
  Country: IN (occurrence: IN)
  Receive Date: 20210518
  Receipt Date: 20211227
  Transmission Date: 20220303
  Serious: Yes (Hospitalization)
  Sender: FDA-Public Use
  Company Number: IN-CIPLA LTD.-2021IN03532

PATIENT

DRUGS (6)
  1. LAMOTRIGINE [Suspect]
     Active Substance: LAMOTRIGINE
     Indication: Depression
     Dosage: UNK
     Route: 065
  2. LAMOTRIGINE [Suspect]
     Active Substance: LAMOTRIGINE
     Dosage: 100 MG PER DAY
     Route: 065
  3. OLANZAPINE [Concomitant]
     Active Substance: OLANZAPINE
     Indication: Major depression
     Dosage: 7.5 MG PER DAY
     Route: 065
     Dates: start: 200408
  4. OLANZAPINE [Concomitant]
     Active Substance: OLANZAPINE
     Dosage: 20 MG PER DAY
     Route: 065
  5. LITHIUM [Concomitant]
     Active Substance: LITHIUM
     Indication: Major depression
     Dosage: 1050 MG PER DAY
     Route: 065
     Dates: start: 200408
  6. LITHIUM [Concomitant]
     Active Substance: LITHIUM
     Dosage: 1200 MG PER DAY
     Route: 065

REACTIONS (1)
  - Mania [Recovered/Resolved]
